FAERS Safety Report 25266550 (Version 1)
Quarter: 2025Q2

REPORT INFORMATION
  Report Type: Spontaneous
  Country: CA (occurrence: CA)
  Receive Date: 20250505
  Receipt Date: 20250505
  Transmission Date: 20250716
  Serious: Yes (Other)
  Sender: AMGEN
  Company Number: CA-AMGEN-CANSP2025084700

PATIENT
  Age: 52 Year
  Sex: Male

DRUGS (4)
  1. REPATHA [Suspect]
     Active Substance: EVOLOCUMAB
     Indication: Product used for unknown indication
     Route: 065
  2. CEFAZOLIN SODIUM [Concomitant]
     Active Substance: CEFAZOLIN SODIUM
     Indication: Product used for unknown indication
     Route: 065
  3. HEPARIN [Concomitant]
     Active Substance: HEPARIN SODIUM
     Indication: Product used for unknown indication
  4. VASCEPA [Suspect]
     Active Substance: ICOSAPENT ETHYL
     Indication: Cardiovascular event prophylaxis
     Dosage: 2 GRAM, QD
     Route: 065

REACTIONS (9)
  - Atrial fibrillation [Recovering/Resolving]
  - Atrial septal defect [Recovering/Resolving]
  - Atrial septal defect repair [Recovering/Resolving]
  - Cardioversion [Recovering/Resolving]
  - Catheterisation cardiac [Recovering/Resolving]
  - Pain [Recovering/Resolving]
  - Poor quality product administered [Recovering/Resolving]
  - Product odour abnormal [Recovering/Resolving]
  - Product taste abnormal [Recovering/Resolving]
